FAERS Safety Report 10181696 (Version 1)
Quarter: 2014Q2

REPORT INFORMATION
  Report Type: Spontaneous
  Country: PT (occurrence: PT)
  Receive Date: 20140519
  Receipt Date: 20140519
  Transmission Date: 20141212
  Serious: Yes (Other)
  Sender: FDA-Public Use
  Company Number: PT-GILEAD-2014-0102536

PATIENT
  Age: 0 Day
  Sex: Male
  Weight: .62 kg

DRUGS (7)
  1. TRUVADA [Suspect]
     Indication: HIV INFECTION
     Dosage: 1 DF, QD
     Route: 064
  2. RETROVIR IV INFUSION [Interacting]
     Indication: PROPHYLAXIS AGAINST HIV INFECTION
     Dosage: 0.9 MG, BID
     Route: 042
     Dates: start: 20140312
  3. KALETRA [Interacting]
     Indication: HIV INFECTION
     Dosage: 2 DF, BID
     Route: 064
  4. RETROVIR [Suspect]
     Indication: PROPHYLAXIS AGAINST HIV INFECTION
     Route: 064
     Dates: start: 20140212, end: 20140312
  5. CAFFEINE CITRATE [Concomitant]
     Indication: PRODUCT USED FOR UNKNOWN INDICATION
     Route: 065
     Dates: start: 20140312
  6. GENTAMICIN [Concomitant]
     Indication: PRODUCT USED FOR UNKNOWN INDICATION
     Route: 065
     Dates: start: 20140312
  7. AMPICILLIN [Concomitant]
     Indication: PRODUCT USED FOR UNKNOWN INDICATION
     Route: 065
     Dates: start: 20140312, end: 20140319

REACTIONS (7)
  - Leukopenia [Recovered/Resolved]
  - Thrombocytopenia [Recovered/Resolved]
  - Sepsis neonatal [Unknown]
  - Low birth weight baby [Not Recovered/Not Resolved]
  - Anaemia [Recovered/Resolved]
  - Neutropenia [Recovered/Resolved]
  - Premature baby [Not Recovered/Not Resolved]
